FAERS Safety Report 22814212 (Version 2)
Quarter: 2023Q4

REPORT INFORMATION
  Report Type: Spontaneous
  Country: TR (occurrence: TR)
  Receive Date: 20230811
  Receipt Date: 20231113
  Transmission Date: 20240110
  Serious: Yes (Other)
  Sender: FDA-Public Use
  Company Number: TR-BRISTOL-MYERS SQUIBB COMPANY-2023-112009

PATIENT
  Sex: Male

DRUGS (2)
  1. YERVOY [Suspect]
     Active Substance: IPILIMUMAB
     Indication: Malignant melanoma
  2. YERVOY [Suspect]
     Active Substance: IPILIMUMAB

REACTIONS (5)
  - Lung neoplasm [Unknown]
  - Hepatic neoplasm [Unknown]
  - Neoplasm [Unknown]
  - Bone neoplasm [Unknown]
  - Off label use [Unknown]
